FAERS Safety Report 7394303-9 (Version None)
Quarter: 2011Q2

REPORT INFORMATION
  Report Type: 
  Country: None (occurrence: None)
  Receive Date: 20110405
  Receipt Date: 20110324
  Transmission Date: 20111010
  Serious: Yes (Other)
  Sender: FDA-Public Use
  Company Number: FR-JNJFOC-20110201641

PATIENT
  Age: 90 Year
  Sex: Female

DRUGS (4)
  1. ACETAMINOPHEN AND TRAMADOL HCL [Suspect]
     Indication: NEURALGIA
     Route: 048
  2. ACETAMINOPHEN AND TRAMADOL HCL [Suspect]
     Indication: OSTEOARTHRITIS
     Route: 048
  3. FORLAX [Concomitant]
  4. MIANSERIN [Concomitant]

REACTIONS (1)
  - MIXED LIVER INJURY [None]
